FAERS Safety Report 5895813-3 (Version None)
Quarter: 2008Q3

REPORT INFORMATION
  Report Type: 
  Country: None (occurrence: None)
  Receive Date: 20080828
  Receipt Date: 20080415
  Transmission Date: 20090109
  Serious: Yes (Other)
  Sender: FDA-Public Use
  Company Number: 200812389US

PATIENT
  Age: 84 Year
  Sex: Female
  Weight: 70.3 kg

DRUGS (2)
  1. LASIX [Suspect]
     Indication: OEDEMA PERIPHERAL
     Dosage: 2 2 DAYS MG BID
     Dates: start: 20080314, end: 20080315
  2. BUMETANIDE [Concomitant]

REACTIONS (2)
  - DRUG INEFFECTIVE [None]
  - OEDEMA [None]
